FAERS Safety Report 12490479 (Version 1)
Quarter: 2016Q2

REPORT INFORMATION
  Report Type: Report from Study
  Country: US (occurrence: US)
  Receive Date: 20160622
  Receipt Date: 20160622
  Transmission Date: 20160815
  Serious: Yes (Other)
  Sender: FDA-Public Use
  Company Number: US-AMGEN-USASL2016079076

PATIENT
  Age: 58 Year
  Sex: Female

DRUGS (1)
  1. ENBREL [Suspect]
     Active Substance: ETANERCEPT
     Indication: RHEUMATOID ARTHRITIS
     Dosage: UNK, QWK
     Route: 065
     Dates: start: 20101201

REACTIONS (4)
  - Rheumatoid arthritis [Unknown]
  - Mobility decreased [Unknown]
  - Back pain [Unknown]
  - Spinal operation [Unknown]

NARRATIVE: CASE EVENT DATE: 2016
